FAERS Safety Report 18214441 (Version 1)
Quarter: 2020Q3

REPORT INFORMATION
  Report Type: Spontaneous
  Country: CN (occurrence: CN)
  Receive Date: 20200831
  Receipt Date: 20200831
  Transmission Date: 20201103
  Serious: Yes (Other)
  Sender: FDA-Public Use
  Company Number: CN-ASTRAZENECA-2020SF07113

PATIENT
  Age: 32085 Day
  Sex: Female
  Weight: 49 kg

DRUGS (8)
  1. METFORMIN [Concomitant]
     Active Substance: METFORMIN HYDROCHLORIDE
     Indication: BLOOD GLUCOSE
     Route: 048
     Dates: start: 20200330, end: 20200801
  2. DAPAGLIFLOZIN. [Suspect]
     Active Substance: DAPAGLIFLOZIN
     Indication: BLOOD GLUCOSE
     Route: 048
     Dates: start: 20200330, end: 20200801
  3. ASPIRIN. [Concomitant]
     Active Substance: ASPIRIN
     Indication: PLATELET AGGREGATION TEST
  4. VALSARTAN. [Concomitant]
     Active Substance: VALSARTAN
     Indication: BLOOD PRESSURE MEASUREMENT
  5. LINAGLIPTIN [Concomitant]
     Active Substance: LINAGLIPTIN
     Indication: BLOOD GLUCOSE
  6. ATORVASTATIN [Concomitant]
     Active Substance: ATORVASTATIN
  7. DAPAGLIFLOZIN. [Suspect]
     Active Substance: DAPAGLIFLOZIN
     Indication: DIABETES MELLITUS
     Route: 048
     Dates: start: 20200330, end: 20200801
  8. BENIDIPINE [Concomitant]
     Active Substance: BENIDIPINE
     Indication: BLOOD PRESSURE MEASUREMENT
     Route: 048
     Dates: start: 20190923, end: 20200801

REACTIONS (15)
  - Cerebral infarction [Recovering/Resolving]
  - Left ventricular dysfunction [Unknown]
  - Coronary artery disease [Unknown]
  - Renal failure [Unknown]
  - Cerebral thrombosis [Unknown]
  - Cerebral arteriosclerosis [Unknown]
  - Hypoproteinaemia [Unknown]
  - Aortic valve incompetence [Unknown]
  - Cerebral atrophy [Unknown]
  - Carotid intima-media thickness increased [Unknown]
  - Hypomagnesaemia [Unknown]
  - Chest discomfort [Recovering/Resolving]
  - Hyperuricaemia [Unknown]
  - Ventricular hypertrophy [Unknown]
  - Carotid arteriosclerosis [Unknown]

NARRATIVE: CASE EVENT DATE: 20200801
